FAERS Safety Report 8158051-X (Version None)
Quarter: 2012Q1

REPORT INFORMATION
  Report Type: 
  Country: None (occurrence: None)
  Receive Date: 20120222
  Receipt Date: 20120216
  Transmission Date: 20120608
  Serious: Yes (Hospitalization, Other)
  Sender: FDA-Public Use
  Company Number: PHHY2011IT109051

PATIENT
  Sex: Female

DRUGS (4)
  1. FOLIC ACID [Concomitant]
     Dosage: UNK UG, UNK
  2. METHERGINE [Suspect]
     Indication: METRORRHAGIA
     Dosage: 2 DF, UNK
     Route: 048
     Dates: start: 20111203, end: 20111205
  3. TRANEX [Concomitant]
     Indication: METRORRHAGIA
     Dosage: 1500 MG, UNK
     Route: 048
     Dates: start: 20111203, end: 20111205
  4. INNEOV TRICO-MASSE [Concomitant]

REACTIONS (4)
  - OVARIAN CYST [None]
  - BILIARY COLIC [None]
  - GALLBLADDER DISORDER [None]
  - ABDOMINAL PAIN [None]
